FAERS Safety Report 8438027-5 (Version None)
Quarter: 2012Q2

REPORT INFORMATION
  Report Type: 
  Country: None (occurrence: None)
  Receive Date: 20120323
  Receipt Date: 20110617
  Transmission Date: 20120825
  Serious: Yes (Hospitalization)
  Sender: FDA-Public Use
  Company Number: 163-21880-11062566

PATIENT
  Age: 69 Year
  Sex: Male

DRUGS (9)
  1. POTASSIUM ACETATE [Concomitant]
  2. FLONASE [Concomitant]
  3. LENALIDOMIDE [Suspect]
     Indication: MULTIPLE MYELOMA
     Dosage: 25 MG, X21, PO
     Route: 048
     Dates: start: 20080222
  4. NATURAL BALANCE (OTHER AGENTS FOR LOCAL ORAL TREATMENT) [Concomitant]
  5. FORADIL AEROLIZER (FORMOTEROL FUMARATE) [Concomitant]
  6. WARFARIN SODIUM [Concomitant]
  7. PROSCAR [Concomitant]
  8. SPIRIVA [Concomitant]
  9. VALIUM [Concomitant]

REACTIONS (1)
  - CEREBROVASCULAR ACCIDENT [None]
